FAERS Safety Report 9519678 (Version 1)
Quarter: 2013Q3

REPORT INFORMATION
  Report Type: Spontaneous
  Country: GB (occurrence: GB)
  Receive Date: 20130912
  Receipt Date: 20130912
  Transmission Date: 20140515
  Serious: Yes (Other)
  Sender: FDA-Public Use
  Company Number: GB-TEVA-430040ISR

PATIENT
  Age: 77 Year
  Sex: Male

DRUGS (4)
  1. RAMIPRIL [Suspect]
     Dosage: 5 MILLIGRAM DAILY;
  2. DOXAZOSIN [Suspect]
     Dates: start: 201307
  3. ASPIRIN [Concomitant]
  4. FELODIPINE [Concomitant]

REACTIONS (1)
  - Atrial fibrillation [Recovered/Resolved]
